FAERS Safety Report 9528822 (Version 1)
Quarter: 2013Q3

REPORT INFORMATION
  Report Type: Spontaneous
  Country: KR (occurrence: KR)
  Receive Date: 20130917
  Receipt Date: 20130917
  Transmission Date: 20140515
  Serious: Yes (Other)
  Sender: FDA-Public Use
  Company Number: KR-009507513-1309KOR003803

PATIENT
  Age: 29 Year
  Sex: Female

DRUGS (1)
  1. IMPLANON [Suspect]
     Indication: CONTRACEPTION
     Dosage: UNK
     Route: 059
     Dates: start: 20130622

REACTIONS (6)
  - Abortion induced [Recovered/Resolved]
  - Uterine dilation and curettage [Unknown]
  - Dyspepsia [Unknown]
  - Unintended pregnancy [Recovered/Resolved]
  - Fatigue [Unknown]
  - Menstruation delayed [Unknown]
